FAERS Safety Report 18579631 (Version 1)
Quarter: 2020Q4

REPORT INFORMATION
  Report Type: Spontaneous
  Country: US (occurrence: US)
  Receive Date: 20201204
  Receipt Date: 20201204
  Transmission Date: 20210114
  Serious: No
  Sender: FDA-Public Use
  Company Number: US-SUNOVION-2020SUN003490

PATIENT
  Sex: Female
  Weight: 114.29 kg

DRUGS (3)
  1. LUNESTA [Suspect]
     Active Substance: ESZOPICLONE
     Indication: PRODUCT USED FOR UNKNOWN INDICATION
     Dosage: 3 MG UNK
     Route: 048
  2. LUNESTA [Suspect]
     Active Substance: ESZOPICLONE
     Dosage: 2 MG UNK
     Route: 048
  3. LUNESTA [Suspect]
     Active Substance: ESZOPICLONE
     Dosage: 1 MG UNK
     Route: 048

REACTIONS (2)
  - Insomnia [Recovered/Resolved]
  - Drug ineffective [Recovered/Resolved]
